FAERS Safety Report 25235790 (Version 1)
Quarter: 2025Q2

REPORT INFORMATION
  Report Type: Spontaneous
  Country: US (occurrence: US)
  Receive Date: 20250424
  Receipt Date: 20250424
  Transmission Date: 20250717
  Serious: Yes (Other)
  Sender: Kenvue
  Company Number: US-KENVUE-20250406640

PATIENT
  Age: 28 Year
  Sex: Female

DRUGS (1)
  1. IBUPROFEN [Suspect]
     Active Substance: IBUPROFEN
     Indication: Arthralgia
     Dosage: 800 MILLIGRAM, THRICE A DAY, FOR SEVERAL MONTHS
     Route: 065

REACTIONS (5)
  - Liver abscess [Unknown]
  - Gastric ulcer [Unknown]
  - Gastric ulcer perforation [Unknown]
  - Anaemia [Unknown]
  - Overdose [Unknown]
